FAERS Safety Report 4297304-2 (Version None)
Quarter: 2004Q1

REPORT INFORMATION
  Report Type: 
  Country: None (occurrence: None)
  Receive Date: 20040218
  Receipt Date: 20031208
  Transmission Date: 20041129
  Serious: Yes (Hospitalization)
  Sender: FDA-Public Use
  Company Number: 200320359US

PATIENT
  Sex: Male
  Weight: 136.6 kg

DRUGS (6)
  1. LANTUS [Suspect]
     Dosage: DOSE UNIT: UNITS
  2. HUMALOG [Concomitant]
     Dosage: DOSE: UNK
  3. LIPITOR [Concomitant]
  4. NEURONTIN [Concomitant]
  5. PRILOSEC [Concomitant]
  6. ZOLOFT [Concomitant]

REACTIONS (10)
  - ANXIETY [None]
  - BLOOD POTASSIUM DECREASED [None]
  - CALCULUS URINARY [None]
  - CHEST PAIN [None]
  - DIARRHOEA [None]
  - DRUG SCREEN POSITIVE [None]
  - DYSURIA [None]
  - HYPOGLYCAEMIA [None]
  - MEDICATION ERROR [None]
  - SYNCOPE [None]
